FAERS Safety Report 10166739 (Version 1)
Quarter: 2014Q2

REPORT INFORMATION
  Report Type: Spontaneous
  Country: US (occurrence: None)
  Receive Date: 20140509
  Receipt Date: 20140509
  Transmission Date: 20141212
  Serious: Yes (Life-Threatening, Other)
  Sender: FDA-Public Use
  Company Number: None

PATIENT
  Age: 62 Year
  Sex: Female
  Weight: 58.97 kg

DRUGS (3)
  1. DULOXETINE DR 20 MG CAPSULES STANDARD BLUE CAPSULE SIDE 1 2890 SIDE 2 2890 MFG ACTAVIS [Suspect]
     Indication: DEPRESSION
     Route: 048
     Dates: start: 20140312, end: 20140401
  2. DULOXETINE DR 20 MG CAPSULES STANDARD BLUE CAPSULE SIDE 1 2890 SIDE 2 2890 MFG ACTAVIS [Suspect]
     Indication: ANXIETY
     Route: 048
     Dates: start: 20140312, end: 20140401
  3. DULOXETINE DR 20 MG CAPSULES STANDARD BLUE CAPSULE SIDE 1 2890 SIDE 2 2890 MFG ACTAVIS [Suspect]
     Indication: ILL-DEFINED DISORDER
     Route: 048
     Dates: start: 20140312, end: 20140401

REACTIONS (20)
  - Headache [None]
  - Dizziness [None]
  - Tremor [None]
  - Heart rate irregular [None]
  - Dyspepsia [None]
  - Vision blurred [None]
  - Mood altered [None]
  - Agitation [None]
  - Anxiety [None]
  - Depression [None]
  - Sluggishness [None]
  - Fatigue [None]
  - Asthenia [None]
  - Eye swelling [None]
  - Restlessness [None]
  - Dyspnoea [None]
  - Loose tooth [None]
  - Gingival bleeding [None]
  - Product substitution issue [None]
  - Drug ineffective [None]
